FAERS Safety Report 4352186-5 (Version None)
Quarter: 2004Q2

REPORT INFORMATION
  Report Type: 
  Country: None (occurrence: None)
  Receive Date: 20040428
  Receipt Date: 20040405
  Transmission Date: 20050107
  Serious: No
  Sender: FDA-Public Use
  Company Number: GBS040414726

PATIENT
  Age: 49 Year
  Sex: Female

DRUGS (1)
  1. OLANZAPINE [Suspect]
     Indication: DELUSIONAL DISORDER, PERSECUTORY TYPE
     Dosage: 10 MG
     Route: 048
     Dates: start: 20031201

REACTIONS (3)
  - MENORRHAGIA [None]
  - OEDEMA PERIPHERAL [None]
  - WEIGHT INCREASED [None]
